FAERS Safety Report 18699329 (Version 3)
Quarter: 2021Q1

REPORT INFORMATION
  Report Type: Report from Study
  Country: US (occurrence: US)
  Receive Date: 20210105
  Receipt Date: 20210208
  Transmission Date: 20210419
  Serious: Yes (Hospitalization)
  Sender: FDA-Public Use
  Company Number: US-GILEAD-2020-0511220

PATIENT
  Age: 9 Year
  Sex: Male

DRUGS (29)
  1. AZTREONAM LYSINE [Suspect]
     Active Substance: AZTREONAM LYSINE
     Indication: PSEUDOMONAS INFECTION
     Dosage: 75 MG, TID; ALTERNATING MONTHS
     Route: 055
     Dates: start: 201909
  2. SENNA [SENNA ALEXANDRINA] [Concomitant]
     Active Substance: SENNA LEAF
  3. PULMOZYME [Concomitant]
     Active Substance: DORNASE ALFA
  4. CENTRUM [MINERALS NOS;VITAMINS NOS] [Concomitant]
     Active Substance: MINERALS\VITAMINS
  5. TRILEPTAL [Concomitant]
     Active Substance: OXCARBAZEPINE
  6. VITAMIN B?6 [Concomitant]
     Active Substance: PYRIDOXINE
  7. MELATONIN [Concomitant]
     Active Substance: MELATONIN
  8. ALBUTEROL SULFATE. [Concomitant]
     Active Substance: ALBUTEROL SULFATE
  9. LACTOBACILLUS [Concomitant]
     Active Substance: LACTOBACILLUS ACIDOPHILUS
  10. BUDESONIDE. [Concomitant]
     Active Substance: BUDESONIDE
  11. SALINE [SODIUM CHLORIDE] [Concomitant]
     Active Substance: SODIUM CHLORIDE
  12. ACETYLCYSTEINE. [Concomitant]
     Active Substance: ACETYLCYSTEINE
  13. IPRATROPIUM BROMIDE. [Concomitant]
     Active Substance: IPRATROPIUM BROMIDE
  14. ZYRTEC [Concomitant]
     Active Substance: CETIRIZINE HYDROCHLORIDE
  15. ONFI [Concomitant]
     Active Substance: CLOBAZAM
  16. KLONOPIN [Concomitant]
     Active Substance: CLONAZEPAM
  17. LEVOCARNITINE. [Concomitant]
     Active Substance: LEVOCARNITINE
  18. GLYCOPYRROLATE [GLYCOPYRRONIUM BROMIDE] [Concomitant]
     Active Substance: GLYCOPYRROLATE
  19. AZTREONAM LYSINE [Suspect]
     Active Substance: AZTREONAM LYSINE
     Indication: STENOTROPHOMONAS INFECTION
  20. SINGULAIR [Concomitant]
     Active Substance: MONTELUKAST SODIUM
  21. GABAPENTIN. [Concomitant]
     Active Substance: GABAPENTIN
  22. KEPPRA [Concomitant]
     Active Substance: LEVETIRACETAM
  23. LACTULOSE. [Concomitant]
     Active Substance: LACTULOSE
  24. SODIUM CHLORIDE. [Concomitant]
     Active Substance: SODIUM CHLORIDE
  25. COLISTIN [Concomitant]
     Active Substance: COLISTIN
     Dosage: UNKNOWN
  26. COLISTIMETHATE [COLISTIMETHATE SODIUM] [Concomitant]
     Active Substance: COLISTIMETHATE SODIUM
  27. FAMOTIDINE. [Concomitant]
     Active Substance: FAMOTIDINE
  28. METOCLOPRAMIDE HCL [Concomitant]
     Active Substance: METOCLOPRAMIDE HYDROCHLORIDE
  29. BACLOFEN. [Concomitant]
     Active Substance: BACLOFEN

REACTIONS (2)
  - Off label use [Not Recovered/Not Resolved]
  - Infection [Unknown]

NARRATIVE: CASE EVENT DATE: 201909
